FAERS Safety Report 21512668 (Version 2)
Quarter: 2022Q4

REPORT INFORMATION
  Report Type: Report from Study
  Country: US (occurrence: US)
  Receive Date: 20221027
  Receipt Date: 20221226
  Transmission Date: 20230113
  Serious: Yes (Hospitalization, Other)
  Sender: FDA-Public Use
  Company Number: US-ABBVIE-4174585

PATIENT
  Sex: Female

DRUGS (1)
  1. RINVOQ [Suspect]
     Active Substance: UPADACITINIB
     Indication: Rheumatoid arthritis
     Dosage: FORM STRENGTH: 15MG
     Route: 048
     Dates: start: 202111

REACTIONS (12)
  - Limb operation [Unknown]
  - COVID-19 pneumonia [Unknown]
  - Weight decreased [Unknown]
  - Unevaluable event [Unknown]
  - Clostridium difficile infection [Unknown]
  - Fall [Unknown]
  - Joint swelling [Unknown]
  - Jaw fracture [Unknown]
  - Bladder operation [Unknown]
  - Arthralgia [Not Recovered/Not Resolved]
  - Frequent bowel movements [Unknown]
  - Asthenia [Unknown]

NARRATIVE: CASE EVENT DATE: 20220101
